FAERS Safety Report 21300080 (Version 7)
Quarter: 2023Q1

REPORT INFORMATION
  Report Type: Report from Study
  Country: TR (occurrence: TR)
  Receive Date: 20220906
  Receipt Date: 20230112
  Transmission Date: 20230418
  Serious: Yes (Hospitalization)
  Sender: FDA-Public Use
  Company Number: TR-ABBVIE-22K-161-4529544-00

PATIENT
  Age: 74 Year
  Sex: Female
  Weight: 60 kg

DRUGS (6)
  1. CARBIDOPA\LEVODOPA [Suspect]
     Active Substance: CARBIDOPA\LEVODOPA
     Indication: Parkinson^s disease
     Dosage: MORNING DOSE (ML) 5.00 CONTINUOUS DOSE (ML) 2.20 EXTRA DOSE (ML) 0.50
     Route: 050
     Dates: start: 20190424, end: 20220831
  2. CARBIDOPA\LEVODOPA [Suspect]
     Active Substance: CARBIDOPA\LEVODOPA
     Dosage: MORNING DOSE (ML) 5.00 CONTINUOUS DOSE (ML) 2.20 EXTRA DOSE (ML) 0.50
     Route: 050
     Dates: start: 20220905, end: 20220908
  3. CARBIDOPA\LEVODOPA [Suspect]
     Active Substance: CARBIDOPA\LEVODOPA
     Dosage: MORNING DOSE (ML): 5.00 CONTINUOUS DOSE (ML): 2.20 EXTRA DOSE (ML): 0.50
     Route: 050
     Dates: start: 20220914, end: 20220915
  4. CARBIDOPA\LEVODOPA [Suspect]
     Active Substance: CARBIDOPA\LEVODOPA
     Dosage: MORNING DOSE (ML): 5.00 CONTINUOUS DOSE (ML): 2.00 EXTRA DOSE (ML): 0.50
     Route: 050
     Dates: start: 20220915, end: 20220916
  5. CARBIDOPA\LEVODOPA [Suspect]
     Active Substance: CARBIDOPA\LEVODOPA
     Dosage: MORNING DOSE (ML): 5.00 CONTINUOUS DOSE (ML): 1.80 EXTRA DOSE (ML): 0.50
     Route: 050
     Dates: start: 20220916, end: 20220928
  6. CARBIDOPA\LEVODOPA [Suspect]
     Active Substance: CARBIDOPA\LEVODOPA
     Dosage: MORNING DOSE (ML): 5.00 CONTINUOUS DOSE (ML): 1.80 EXTRA DOSE (ML): 0.50
     Route: 050
     Dates: start: 20230107

REACTIONS (4)
  - Gastric haemorrhage [Recovered/Resolved]
  - Dyskinesia [Recovered/Resolved]
  - Medical device site haemorrhage [Recovered/Resolved]
  - Constipation [Not Recovered/Not Resolved]

NARRATIVE: CASE EVENT DATE: 20220831
